FAERS Safety Report 7534665 (Version 2)
Quarter: 2014Q3

REPORT INFORMATION
  Report Type: Report from Study
  Country: JP (occurrence: JP)
  Receive Date: 20100810
  Receipt Date: 20140812
  Transmission Date: 20150326
  Serious: Yes (Other)
  Sender: FDA-Public Use
  Company Number: JP-BIOGENIDEC-2010BI026930

PATIENT
  Age: 28 Year
  Sex: Female

DRUGS (6)
  1. MUCOSTA [Concomitant]
     Active Substance: REBAMIPIDE
  2. AVONEX [Suspect]
     Active Substance: INTERFERON BETA-1A
     Indication: RELAPSING-REMITTING MULTIPLE SCLEROSIS
     Route: 030
     Dates: start: 20070706, end: 20070713
  3. AVONEX [Suspect]
     Active Substance: INTERFERON BETA-1A
     Indication: RELAPSING-REMITTING MULTIPLE SCLEROSIS
     Route: 030
     Dates: start: 20070719, end: 20071119
  4. AVONEX [Suspect]
     Active Substance: INTERFERON BETA-1A
     Indication: RELAPSING-REMITTING MULTIPLE SCLEROSIS
     Route: 030
     Dates: start: 20080901
  5. MUCOSTA [Concomitant]
     Active Substance: REBAMIPIDE
     Dates: start: 20070713
  6. LOXONIN [Concomitant]
     Active Substance: LOXOPROFEN SODIUM
     Dates: start: 20070807

REACTIONS (1)
  - Caesarean section [Unknown]

NARRATIVE: CASE EVENT DATE: 20080725
